FAERS Safety Report 4268109-3 (Version None)
Quarter: 2004Q1

REPORT INFORMATION
  Report Type: 
  Country: None (occurrence: None)
  Receive Date: 20040108
  Receipt Date: 20040108
  Transmission Date: 20041129
  Serious: Yes (Death)
  Sender: FDA-Public Use
  Company Number: None

PATIENT
  Age: 74 Year
  Sex: Male

DRUGS (1)
  1. ANEURX STENT GRAFT SYSTEM ENDOVASCULAR GRAFT FOR AAA [Suspect]

REACTIONS (5)
  - BLOOD PRESSURE DECREASED [None]
  - COMPLICATION OF DEVICE REMOVAL [None]
  - GRAFT COMPLICATION [None]
  - POST PROCEDURAL COMPLICATION [None]
  - POST PROCEDURAL HAEMORRHAGE [None]
